FAERS Safety Report 23121897 (Version 2)
Quarter: 2023Q4

REPORT INFORMATION
  Report Type: Report from Study
  Country: US (occurrence: US)
  Receive Date: 20231030
  Receipt Date: 20231225
  Transmission Date: 20240110
  Serious: Yes (Other)
  Sender: FDA-Public Use
  Company Number: US-ABBVIE-5411019

PATIENT
  Sex: Female

DRUGS (2)
  1. HUMIRA [Suspect]
     Active Substance: ADALIMUMAB
     Indication: Hidradenitis
     Dosage: DRUG END DATE 2023?FORM STRENGTH UNITS: 40 MILLIGRAM?CITRATE FREE
     Route: 058
     Dates: start: 20230221
  2. HUMIRA [Suspect]
     Active Substance: ADALIMUMAB
     Dosage: FORM STRENGTH UNITS: 40 MILLIGRAM?CITRATE FREE
     Route: 058
     Dates: start: 2023, end: 2023

REACTIONS (5)
  - Uterine leiomyoma [Not Recovered/Not Resolved]
  - Hidradenitis [Recovering/Resolving]
  - Blood iron abnormal [Unknown]
  - Device issue [Unknown]
  - Hidradenitis [Recovered/Resolved]

NARRATIVE: CASE EVENT DATE: 20230101
